FAERS Safety Report 5890999-9 (Version None)
Quarter: 2008Q3

REPORT INFORMATION
  Report Type: 
  Country: None (occurrence: None)
  Receive Date: 20080922
  Receipt Date: 20080910
  Transmission Date: 20090109
  Serious: Yes (Hospitalization)
  Sender: FDA-Public Use
  Company Number: B0536607A

PATIENT
  Age: 86 Year
  Sex: Female

DRUGS (13)
  1. AVANDAMET [Suspect]
     Dosage: 1TAB TWICE PER DAY
     Route: 048
     Dates: end: 20080217
  2. COTAREG [Suspect]
     Dosage: 1TAB PER DAY
     Route: 048
     Dates: end: 20080217
  3. DIOSMINE [Suspect]
     Dosage: 1UNIT PER DAY
     Route: 048
     Dates: end: 20080217
  4. LAMALINE [Suspect]
     Indication: PAIN
     Dosage: 1UNIT THREE TIMES PER DAY
     Route: 048
     Dates: end: 20080217
  5. NEXIUM [Concomitant]
     Dosage: 20MG PER DAY
     Route: 048
  6. ZOPICLONE [Concomitant]
     Indication: INSOMNIA
     Route: 048
  7. TAHOR [Concomitant]
     Dosage: 10MG PER DAY
     Route: 048
  8. XALATAN [Concomitant]
     Dosage: 1UNIT PER DAY
  9. TRUSOPT [Concomitant]
     Dosage: 1G TWICE PER DAY
  10. REFRESH [Concomitant]
  11. BISOPROLOL FUMARATE [Concomitant]
     Dosage: 1UNIT PER DAY
  12. ASPIRIN [Concomitant]
     Dosage: 75MG PER DAY
     Route: 048
  13. TRINITRINE [Concomitant]
     Dosage: 10MG PER DAY

REACTIONS (9)
  - AMNESIA [None]
  - ASTHENIA [None]
  - CONFUSIONAL STATE [None]
  - HALLUCINATION, AUDITORY [None]
  - HALLUCINATION, VISUAL [None]
  - HYPONATRAEMIA [None]
  - LOSS OF CONSCIOUSNESS [None]
  - MALAISE [None]
  - VOMITING [None]
